FAERS Safety Report 17202512 (Version 2)
Quarter: 2020Q1

REPORT INFORMATION
  Report Type: Spontaneous
  Country: US (occurrence: US)
  Receive Date: 20191226
  Receipt Date: 20200103
  Transmission Date: 20200409
  Serious: Yes (Hospitalization, Other)
  Sender: FDA-Public Use
  Company Number: US-HIKMA PHARMACEUTICALS USA INC.-US-H14001-19-06281

PATIENT
  Age: 3 Year
  Sex: Female
  Weight: 14.5 kg

DRUGS (10)
  1. DOXORUBICIN [Suspect]
     Active Substance: DOXORUBICIN
     Indication: B-CELL TYPE ACUTE LEUKAEMIA
     Route: 042
     Dates: start: 20191008
  2. METHOTREXATE. [Suspect]
     Active Substance: METHOTREXATE
     Indication: B-CELL TYPE ACUTE LEUKAEMIA
     Route: 037
     Dates: start: 20191008
  3. CYTARABINE. [Suspect]
     Active Substance: CYTARABINE
     Route: 058
     Dates: start: 20191112
  4. VINCRISTINE [Suspect]
     Active Substance: VINCRISTINE
     Indication: B-CELL TYPE ACUTE LEUKAEMIA
     Route: 042
     Dates: start: 20191008
  5. PEGASPARGASE [Suspect]
     Active Substance: PEGASPARGASE
     Indication: B-CELL TYPE ACUTE LEUKAEMIA
     Route: 042
     Dates: start: 20191011
  6. CYTARABINE. [Suspect]
     Active Substance: CYTARABINE
     Indication: B-CELL TYPE ACUTE LEUKAEMIA
     Route: 042
     Dates: start: 20191112
  7. DEXAMETHASONE. [Suspect]
     Active Substance: DEXAMETHASONE
     Indication: B-CELL TYPE ACUTE LEUKAEMIA
     Route: 048
     Dates: start: 20191008
  8. THIOGUANINE [Suspect]
     Active Substance: THIOGUANINE
     Indication: B-CELL TYPE ACUTE LEUKAEMIA
     Route: 048
     Dates: start: 20191112
  9. INCB018424 [Suspect]
     Active Substance: RUXOLITINIB
     Indication: B-CELL TYPE ACUTE LEUKAEMIA
     Route: 048
     Dates: start: 20191008
  10. CYCLOPHOSPHAMIDE. [Suspect]
     Active Substance: CYCLOPHOSPHAMIDE
     Indication: B-CELL TYPE ACUTE LEUKAEMIA
     Route: 042
     Dates: start: 20191112

REACTIONS (5)
  - Herpes virus infection [Unknown]
  - Hypophagia [Unknown]
  - Malnutrition [Unknown]
  - Febrile neutropenia [Recovered/Resolved]
  - Weight decreased [Unknown]

NARRATIVE: CASE EVENT DATE: 20191030
